FAERS Safety Report 24338604 (Version 3)
Quarter: 2024Q4

REPORT INFORMATION
  Report Type: Spontaneous
  Country: NZ (occurrence: NZ)
  Receive Date: 20240919
  Receipt Date: 20241007
  Transmission Date: 20250115
  Serious: Yes (Hospitalization, Other)
  Sender: MYLAN
  Company Number: NZ-MYLANLABS-2024M1083596

PATIENT
  Age: 74 Year
  Sex: Female

DRUGS (17)
  1. CLOZARIL [Suspect]
     Active Substance: CLOZAPINE
     Indication: Schizophrenia
     Dosage: 375 MILLIGRAM, PM (AT NIGHT)
     Route: 048
     Dates: start: 19940308, end: 20240913
  2. AMISULPRIDE [Concomitant]
     Active Substance: AMISULPRIDE
     Indication: Mental disorder
     Dosage: 200 MILLIGRAM, BID
     Route: 048
  3. LEVETIRACETAM [Concomitant]
     Active Substance: LEVETIRACETAM
     Indication: Epilepsy
     Dosage: 1500 MILLIGRAM, BID
     Route: 048
  4. SERTRALINE [Concomitant]
     Active Substance: SERTRALINE HYDROCHLORIDE
     Indication: Mental disorder
     Dosage: 150 MILLIGRAM, QD (OD)
     Route: 048
  5. LORAZEPAM [Concomitant]
     Active Substance: LORAZEPAM
     Indication: Mental disorder
     Dosage: UNK, QD (1-2 MILLIGRAM OD, PRN)
     Route: 048
  6. PHENYTOIN [Concomitant]
     Active Substance: PHENYTOIN
     Indication: Epilepsy
     Dosage: 300 MILLIGRAM, BID (BD)
     Route: 048
  7. DOCUSATE SODIUM\SENNOSIDES A AND B [Concomitant]
     Active Substance: DOCUSATE SODIUM\SENNOSIDES A AND B
     Indication: Constipation
     Dosage: 2 DOSAGE FORM, QD (OD, PRN)
     Route: 048
  8. OMEPRAZOLE [Concomitant]
     Active Substance: OMEPRAZOLE
     Dosage: 40 MILLIGRAM, QD (OD)
     Route: 048
  9. CODEINE [Concomitant]
     Active Substance: CODEINE
     Dosage: UNK
     Route: 065
  10. IBUPROFEN [Concomitant]
     Active Substance: IBUPROFEN
     Dosage: UNK
     Route: 065
  11. LEVOTHYROXINE [Concomitant]
     Active Substance: LEVOTHYROXINE
     Indication: Thyroid disorder
     Dosage: 150 MILLIGRAM, QD (OD)
     Route: 048
  12. HYDROXOCOBALAMIN [Concomitant]
     Active Substance: HYDROXOCOBALAMIN
     Dosage: UNK UNK, MONTHLY (1 MILLIGRAM PER MILLILITRE)
     Route: 030
  13. ACETAMINOPHEN [Concomitant]
     Active Substance: ACETAMINOPHEN
     Dosage: 1 GRAM, QID (QDS, PRN)
     Route: 048
  14. PYRIDOXINE [Concomitant]
     Active Substance: PYRIDOXINE
     Dosage: 50 MILLIGRAM, QD (OD)
     Route: 048
  15. ADALIMUMAB [Concomitant]
     Active Substance: ADALIMUMAB
     Indication: Crohn^s disease
     Dosage: 40 MILLIGRAM, QW (ONCE A WEEK)
     Route: 048
  16. CHOLECALCIFEROL [Concomitant]
     Active Substance: CHOLECALCIFEROL
     Dosage: 1.25 MILLIGRAM, MONTHLY
     Route: 048
  17. FUROSEMIDE [Concomitant]
     Active Substance: FUROSEMIDE
     Dosage: 40 MILLIGRAM, QD(OD)
     Route: 048

REACTIONS (4)
  - Small intestinal obstruction [Recovered/Resolved]
  - Antipsychotic drug level increased [Unknown]
  - Neutrophilia [Not Recovered/Not Resolved]
  - Leukocytosis [Not Recovered/Not Resolved]

NARRATIVE: CASE EVENT DATE: 20240912
